FAERS Safety Report 9889134 (Version 1)
Quarter: 2014Q1

REPORT INFORMATION
  Report Type: Spontaneous
  Country: DK (occurrence: SE)
  Receive Date: 20140211
  Receipt Date: 20140211
  Transmission Date: 20141002
  Serious: Yes (Other)
  Sender: FDA-Public Use
  Company Number: SE-FRI-1000054117

PATIENT
  Age: 37 Year
  Sex: Female

DRUGS (1)
  1. ESCITALOPRAM [Suspect]
     Indication: ANXIETY
     Dates: start: 20120910

REACTIONS (2)
  - Optic neuritis [Unknown]
  - Vision blurred [Unknown]
